FAERS Safety Report 16383407 (Version 1)
Quarter: 2019Q2

REPORT INFORMATION
  Report Type: Spontaneous
  Country: US (occurrence: US)
  Receive Date: 20190515
  Receipt Date: 20190515
  Transmission Date: 20190711
  Serious: Yes (Other)
  Sender: FDA-Public Use
  Company Number: None

PATIENT
  Age: 70 Year
  Sex: Female
  Weight: 38.7 kg

DRUGS (11)
  1. COLGATE TOTAL SF WHITENING [Suspect]
     Active Substance: STANNOUS FLUORIDE
     Indication: DENTAL CARE
     Dosage: ?          QUANTITY:136 4.8 OZ;OTHER ROUTE:BRUSHING?
  2. VITAMIN D3 [Concomitant]
     Active Substance: CHOLECALCIFEROL
  3. E [Concomitant]
  4. MULTIVITAMINS FOR SENIORS [Concomitant]
  5. PROVENTIL [Concomitant]
     Active Substance: ALBUTEROL
  6. NASONEX [Concomitant]
     Active Substance: MOMETASONE FUROATE
  7. CALCIUM [Concomitant]
     Active Substance: CALCIUM
  8. ALPRAZOLAM. [Concomitant]
     Active Substance: ALPRAZOLAM
  9. SYMBICORT [Concomitant]
     Active Substance: BUDESONIDE\FORMOTEROL FUMARATE DIHYDRATE
  10. NEXIUM [Concomitant]
     Active Substance: ESOMEPRAZOLE MAGNESIUM
  11. A [Concomitant]

REACTIONS (10)
  - Gingival discomfort [None]
  - Tongue discomfort [None]
  - Dry mouth [None]
  - Application site irritation [None]
  - Oral discomfort [None]
  - Stomatitis [None]
  - Product taste abnormal [None]
  - Application site pain [None]
  - Glossitis [None]
  - Cheilitis [None]

NARRATIVE: CASE EVENT DATE: 20190513
